FAERS Safety Report 17005442 (Version 1)
Quarter: 2019Q4

REPORT INFORMATION
  Report Type: Spontaneous
  Country: US (occurrence: US)
  Receive Date: 20191107
  Receipt Date: 20191107
  Transmission Date: 20200122
  Serious: Yes (Other)
  Sender: FDA-Public Use
  Company Number: US-TEVA-2019-US-1133673

PATIENT

DRUGS (1)
  1. PREGABALIN. [Suspect]
     Active Substance: PREGABALIN
     Route: 065

REACTIONS (6)
  - Peripheral swelling [Unknown]
  - Product substitution issue [Unknown]
  - Diabetes mellitus [Unknown]
  - Dizziness [Unknown]
  - Vision blurred [Unknown]
  - Cardiac failure congestive [Unknown]
